FAERS Safety Report 9848189 (Version 1)
Quarter: 2014Q1

REPORT INFORMATION
  Report Type: Spontaneous
  Country: US (occurrence: US)
  Receive Date: 20140128
  Receipt Date: 20140128
  Transmission Date: 20141002
  Serious: No
  Sender: FDA-Public Use
  Company Number: US-PFIZER INC-2014021668

PATIENT
  Age: 41 Year
  Sex: Female
  Weight: 95.24 kg

DRUGS (4)
  1. LYRICA [Suspect]
     Indication: NEURALGIA
     Dosage: 50 MG, 2X/DAY
     Route: 048
     Dates: start: 20140121
  2. LUNESTA [Interacting]
     Indication: INSOMNIA
     Dosage: UNK, 1X/DAY
     Route: 048
  3. AMBIEN [Concomitant]
     Dosage: UNK
  4. LEVOTHYROXINE [Concomitant]
     Indication: HYPOTHYROIDISM
     Dosage: UNK

REACTIONS (4)
  - Drug interaction [Unknown]
  - Somnolence [Unknown]
  - Insomnia [Unknown]
  - Hangover [Unknown]
